FAERS Safety Report 17791576 (Version 2)
Quarter: 2021Q2

REPORT INFORMATION
  Report Type: Spontaneous
  Country: US (occurrence: US)
  Receive Date: 20200515
  Receipt Date: 20210528
  Transmission Date: 20210716
  Serious: Yes (Death)
  Sender: FDA-Public Use
  Company Number: US-CURRAX PHARMACEUTICALS LLC-US-2020PER000043

PATIENT
  Sex: Male

DRUGS (1)
  1. SF 5000 PLUS [Suspect]
     Active Substance: SODIUM FLUORIDE
     Indication: DENTAL CARIES
     Dosage: UNK, FOLLOWED THE DIRECTIONS
     Route: 048

REACTIONS (5)
  - Pulmonary hypertension [Fatal]
  - Cardiac failure [Fatal]
  - Sleep apnoea syndrome [Unknown]
  - Hypoxia [Fatal]
  - Living in residential institution [Unknown]

NARRATIVE: CASE EVENT DATE: 2017
